FAERS Safety Report 10466757 (Version 1)
Quarter: 2014Q3

REPORT INFORMATION
  Report Type: Spontaneous
  Country: ZW (occurrence: None)
  Receive Date: 20140919
  Receipt Date: 20140919
  Transmission Date: 20150326
  Serious: Yes (Hospitalization)
  Sender: FDA-Public Use
  Company Number: None

PATIENT
  Age: 48 Year
  Sex: Female
  Weight: 61 kg

DRUGS (1)
  1. CISPLATIN. [Suspect]
     Active Substance: CISPLATIN
     Dosage: SUBJECT DID NOT RECEIVE CYCLE 6 DOSE OF CISPLATIN ON 08/06/2014 DUE TO PRIOR GRADE 3 NEUTROPENIA (REPORTED AS RESOLVED 08/07/2014 AND NOT REQUIRING HOSPITALIZATION).

REACTIONS (6)
  - Influenza like illness [None]
  - Dehydration [None]
  - Body temperature increased [None]
  - Vomiting [None]
  - Pallor [None]
  - Vulvovaginal adhesion [None]

NARRATIVE: CASE EVENT DATE: 20140816
